FAERS Safety Report 7396545-5 (Version None)
Quarter: 2011Q2

REPORT INFORMATION
  Report Type: 
  Country: None (occurrence: None)
  Receive Date: 20110406
  Receipt Date: 20110324
  Transmission Date: 20111010
  Serious: Yes (Death, Hospitalization)
  Sender: FDA-Public Use
  Company Number: US-CELGENEUS-163-21880-10082508

PATIENT
  Age: 61 Year
  Sex: Female
  Weight: 67.7 kg

DRUGS (9)
  1. CALCIUM AND VITAMIN D [Concomitant]
     Route: 065
  2. POTASSIUM CHLORIDE [Concomitant]
     Dosage: 20 MILLIEQUIVALENTS
     Route: 065
  3. REVLIMID [Suspect]
     Indication: MULTIPLE MYELOMA
     Dosage: 15 MILLIGRAM
     Route: 048
     Dates: start: 20090113
  4. ASPIRIN [Concomitant]
     Dosage: 81 MILLIGRAM
     Route: 048
  5. FEMARA [Concomitant]
     Dosage: 2.5 MILLIGRAM
     Route: 048
  6. MULTI-VITAMINS [Concomitant]
     Route: 065
  7. VITAMIN B6 [Concomitant]
     Dosage: 100 MILLIGRAM
     Route: 048
  8. ZOMETA [Concomitant]
     Route: 065
  9. REVLIMID [Suspect]
     Dosage: 15 MILLIGRAM
     Route: 048
     Dates: start: 20100801, end: 20100812

REACTIONS (2)
  - DEATH [None]
  - MENINGITIS [None]
